FAERS Safety Report 25212166 (Version 1)
Quarter: 2025Q2

REPORT INFORMATION
  Report Type: Report from Study
  Country: CA (occurrence: CA)
  Receive Date: 20250418
  Receipt Date: 20250418
  Transmission Date: 20250716
  Serious: Yes (Hospitalization)
  Sender: ABBVIE
  Company Number: CA-ABBVIE-6220316

PATIENT
  Age: 88 Year
  Sex: Male

DRUGS (7)
  1. VENETOCLAX [Suspect]
     Active Substance: VENETOCLAX
     Indication: Acute myeloid leukaemia
     Dosage: OUT-PATIENT, ONCE
     Route: 048
     Dates: start: 20240102, end: 20240102
  2. VENETOCLAX [Suspect]
     Active Substance: VENETOCLAX
     Indication: Acute myeloid leukaemia
     Dosage: OUT-PATIENT, ONCE
     Route: 048
     Dates: start: 20240103, end: 20240103
  3. VENETOCLAX [Suspect]
     Active Substance: VENETOCLAX
     Indication: Acute myeloid leukaemia
     Dosage: OUT-PATIENT, GENERAL FRAILTY. AFTER AZA TREATMENT, THE PATIENT WAS VERY WEAK, MAKING IT DIFFICULT...
     Route: 048
     Dates: start: 20240104, end: 20240104
  4. AZACITIDINE [Suspect]
     Active Substance: AZACITIDINE
     Indication: Acute myeloid leukaemia
     Dosage: OUT-PATIENT, GENERAL FRAILTY. AFTER 2 DAYS OF TREATMENT, THE PATIENT WAS VERY WEAK, MAKING IT DIF...
     Route: 065
     Dates: start: 20240102, end: 20240103
  5. COVID-19 vaccine mRNA [Concomitant]
     Indication: COVID-19 immunisation
     Route: 030
  6. COVID-19 vaccine mRNA [Concomitant]
     Indication: COVID-19 immunisation
     Route: 030
  7. COVID-19 vaccine mRNA [Concomitant]
     Indication: COVID-19 immunisation
     Route: 030

REACTIONS (1)
  - Muscular weakness [Recovered/Resolved]

NARRATIVE: CASE EVENT DATE: 20240113
